FAERS Safety Report 7801544-2 (Version None)
Quarter: 2011Q4

REPORT INFORMATION
  Report Type: 
  Country: None (occurrence: None)
  Receive Date: 20111007
  Receipt Date: 20111004
  Transmission Date: 20120403
  Serious: Yes (Death, Other)
  Sender: FDA-Public Use
  Company Number: JP-BAYER-200913617BYL

PATIENT
  Age: 61 Year
  Sex: Female
  Weight: 60 kg

DRUGS (6)
  1. NEXAVAR [Suspect]
     Indication: RENAL CELL CARCINOMA STAGE IV
     Dosage: 400 MG, BID
     Route: 048
     Dates: start: 20090714, end: 20090722
  2. NEXAVAR [Suspect]
     Dosage: DAILY DOSE 800 MG
     Dates: start: 20100209, end: 20100713
  3. NEXAVAR [Suspect]
     Dosage: 400 MG (DAILY DOSE), , ORAL
     Route: 048
     Dates: start: 20090723, end: 20090901
  4. TAGAMET [Concomitant]
     Dosage: 400 MG (DAILY DOSE), , ORAL
     Route: 048
     Dates: start: 20090714, end: 20090728
  5. NEXAVAR [Suspect]
     Dosage: 400 MG, QD
     Route: 048
     Dates: start: 20090929
  6. PERINDOPRIL ERBUMINE [Concomitant]
     Indication: PROPHYLAXIS
     Dosage: 8 MG (DAILY DOSE), , ORAL
     Route: 048
     Dates: start: 20090714, end: 20090728

REACTIONS (7)
  - LIPASE INCREASED [None]
  - PALMAR-PLANTAR ERYTHRODYSAESTHESIA SYNDROME [None]
  - DIARRHOEA [None]
  - HEPATIC FUNCTION ABNORMAL [None]
  - HYPOPHOSPHATAEMIA [None]
  - RENAL CELL CARCINOMA [None]
  - ALOPECIA [None]
